FAERS Safety Report 5018541-5 (Version None)
Quarter: 2006Q2

REPORT INFORMATION
  Report Type: 
  Country: None (occurrence: None)
  Receive Date: 20060605
  Receipt Date: 20060526
  Transmission Date: 20061013
  Serious: Yes (Other)
  Sender: FDA-Public Use
  Company Number: US-MERCK-0605USA04867

PATIENT
  Age: 54 Year
  Sex: Male

DRUGS (2)
  1. AQUAMEPHYTON [Suspect]
     Indication: HAEMATURIA
     Route: 030
  2. AQUAMEPHYTON [Suspect]
     Indication: AMYLOIDOSIS
     Route: 030

REACTIONS (9)
  - AMYLOIDOSIS [None]
  - CARDIAC AMYLOIDOSIS [None]
  - CARDIAC FAILURE CONGESTIVE [None]
  - DRUG INEFFECTIVE [None]
  - FACTOR X DEFICIENCY [None]
  - PROTHROMBIN TIME PROLONGED [None]
  - REFUSAL OF TREATMENT BY PATIENT [None]
  - SOFT TISSUE HAEMORRHAGE [None]
  - SPLENOMEGALY [None]
